FAERS Safety Report 6572023-8 (Version None)
Quarter: 2010Q1

REPORT INFORMATION
  Report Type: 
  Country: None (occurrence: None)
  Receive Date: 20100205
  Receipt Date: 20100129
  Transmission Date: 20100710
  Serious: Yes (Other)
  Sender: FDA-Public Use
  Company Number: US-PFIZER INC-2009268196

PATIENT
  Sex: Female
  Weight: 88.4 kg

DRUGS (8)
  1. LYRICA [Suspect]
     Indication: FIBROMYALGIA
     Dosage: UNK
     Route: 048
     Dates: start: 20090801
  2. LYRICA [Suspect]
     Indication: PAIN
  3. LISINOPRIL [Suspect]
     Indication: BLOOD PRESSURE
     Dosage: UNK
  4. PREDNISONE [Suspect]
     Indication: ASTHMA
     Dosage: 2 ROUNDS
  5. EFFEXOR [Suspect]
     Indication: FIBROMYALGIA
     Dosage: UNK
     Route: 048
     Dates: end: 20090101
  6. CYMBALTA [Suspect]
     Indication: FIBROMYALGIA
     Dosage: UNK
  7. HYDRODIURIL [Concomitant]
     Dosage: 25 MG, 1X/DAY
  8. DARVOCET [Concomitant]
     Dosage: UNK
     Route: 048
     Dates: end: 20090101

REACTIONS (7)
  - ASTHMA [None]
  - HEADACHE [None]
  - MYALGIA [None]
  - PNEUMONIA [None]
  - PRURITUS [None]
  - VISION BLURRED [None]
  - WEIGHT INCREASED [None]
